FAERS Safety Report 4637118-4 (Version None)
Quarter: 2005Q2

REPORT INFORMATION
  Report Type: 
  Country: None (occurrence: None)
  Receive Date: 20050325
  Receipt Date: 20041207
  Transmission Date: 20051028
  Serious: No
  Sender: FDA-Public Use
  Company Number: USA040773706

PATIENT
  Sex: Female

DRUGS (18)
  1. FORTEO [Suspect]
     Indication: OSTEOPOROSIS
     Dosage: 20 UG/1 IN THE EVENING
     Dates: start: 20040707
  2. NORVASC [Concomitant]
  3. SLOW-K [Concomitant]
  4. BENADRYL [Concomitant]
  5. NEURONTIN [Concomitant]
  6. ORTHOTEX PLUS [Concomitant]
  7. KLONOPIN [Concomitant]
  8. CELEXA [Concomitant]
  9. VITAMIN B12 FOR INJECTION (CYANOCOBALAMIN) [Concomitant]
  10. LASIX [Concomitant]
  11. ALLEGRA [Concomitant]
  12. ARTHROTEC [Concomitant]
  13. MIACALCIN [Concomitant]
  14. AMBIEN [Concomitant]
  15. VITAMIN B12 FOR INJECTION (CYANOCOBALAMIN) [Concomitant]
  16. TRAZODONE [Concomitant]
  17. CHROMAGEN FORTE [Concomitant]
  18. KADIAN (MORHINE SULFATE) [Concomitant]

REACTIONS (6)
  - ANAEMIA [None]
  - HYPERLIPIDAEMIA [None]
  - HYPOTHYROIDISM [None]
  - PAIN [None]
  - PITTING OEDEMA [None]
  - THYROID FUNCTION TEST ABNORMAL [None]
